FAERS Safety Report 6489988-5 (Version None)
Quarter: 2009Q4

REPORT INFORMATION
  Report Type: 
  Country: None (occurrence: None)
  Receive Date: 20091211
  Receipt Date: 20091204
  Transmission Date: 20100525
  Serious: Yes (Other)
  Sender: FDA-Public Use
  Company Number: PHEH2009US17282

PATIENT
  Sex: Male

DRUGS (3)
  1. EXJADE [Suspect]
     Dosage: 1500 MG DAILY
     Route: 048
     Dates: start: 20091014, end: 20091113
  2. ANTIBIOTICS [Concomitant]
  3. ANALGESICS [Concomitant]

REACTIONS (1)
  - HERPES ZOSTER [None]
